FAERS Safety Report 22534097 (Version 2)
Quarter: 2023Q2

REPORT INFORMATION
  Report Type: Spontaneous
  Country: IE (occurrence: IE)
  Receive Date: 20230608
  Receipt Date: 20230630
  Transmission Date: 20230721
  Serious: Yes (Other)
  Sender: FDA-Public Use
  Company Number: None

PATIENT

DRUGS (6)
  1. DICLOFENAC [Suspect]
     Active Substance: DICLOFENAC
     Indication: Inflammation
     Dosage: UNK (TOPICAL)
     Dates: start: 20230515, end: 20230517
  2. DICLOFENAC [Suspect]
     Active Substance: DICLOFENAC
     Indication: Joint injury
  3. DICLOFENAC [Suspect]
     Active Substance: DICLOFENAC
     Indication: Pain
  4. DIFENE [Suspect]
     Active Substance: DICLOFENAC SODIUM
     Indication: Inflammation
     Dosage: 75 MG, BID, TAKEN AFTER A FULL MEAL (1 AFTER BREAKFAST AT 7AM, ONE AFTER DINNER 6PM FOR 2 AND A HALF
     Route: 048
     Dates: start: 20230515, end: 20230517
  5. DIFENE [Suspect]
     Active Substance: DICLOFENAC SODIUM
     Indication: Pain
  6. DIFENE [Suspect]
     Active Substance: DICLOFENAC SODIUM
     Indication: Meniscus injury

REACTIONS (4)
  - Gastrointestinal haemorrhage [Recovered/Resolved]
  - Abdominal pain [Recovered/Resolved]
  - Haematochezia [Recovered/Resolved]
  - Diarrhoea [Recovered/Resolved]

NARRATIVE: CASE EVENT DATE: 20230516
